FAERS Safety Report 8484697-5 (Version None)
Quarter: 2012Q3

REPORT INFORMATION
  Report Type: 
  Country: None (occurrence: None)
  Receive Date: 20120703
  Receipt Date: 20120504
  Transmission Date: 20120928
  Serious: No
  Sender: FDA-Public Use
  Company Number: US-TEVA-336792USA

PATIENT
  Sex: Female
  Weight: 75.818 kg

DRUGS (16)
  1. NUVIGIL [Suspect]
     Indication: NARCOLEPSY
     Dosage: 150 MILLIGRAM;
     Route: 048
  2. NICOTINAM. W/PYRIDOXI. HCL/RIBOFL./THIAM. HCL [Concomitant]
  3. LANSOPRAZOLE [Concomitant]
     Route: 048
  4. CLOPIDOGREL [Concomitant]
     Dosage: 75 MILLIGRAM;
     Route: 048
  5. CYANOCOBALAMIN [Concomitant]
  6. ZALEPLON [Concomitant]
     Route: 048
  7. BYSTOLIC [Concomitant]
     Dosage: 25 MILLIGRAM;
  8. OXYCODONE HCL [Concomitant]
  9. ERGOCALCIFEROL [Concomitant]
  10. AMLODIPINE [Concomitant]
     Dosage: 2.5 MILLIGRAM;
     Route: 048
  11. ROSUVASTATIN [Concomitant]
     Dosage: 2.5 MILLIGRAM;
     Route: 048
  12. LOVAZA [Concomitant]
     Dosage: 1000 MILLIGRAM;
  13. LEVOTHYROXINE SODIUM [Concomitant]
     Dosage: .75 MILLIGRAM;
     Route: 048
     Dates: start: 19940101
  14. MELATONIN [Concomitant]
  15. DIAZEPAM [Concomitant]
     Dosage: 5 MILLIGRAM;
     Route: 048
  16. PREGABALIN [Concomitant]
     Dosage: 50 MILLIGRAM;
     Route: 048

REACTIONS (2)
  - BLOOD PRESSURE INCREASED [None]
  - DRUG INEFFECTIVE [None]
